FAERS Safety Report 12083949 (Version 2)
Quarter: 2016Q1

REPORT INFORMATION
  Report Type: Spontaneous
  Country: US (occurrence: US)
  Receive Date: 20160217
  Receipt Date: 20160325
  Transmission Date: 20160526
  Serious: Yes (Hospitalization)
  Sender: FDA-Public Use
  Company Number: US-ASTELLAS-2016US005521

PATIENT
  Sex: Male

DRUGS (1)
  1. XTANDI [Suspect]
     Active Substance: ENZALUTAMIDE
     Indication: PROSTATE CANCER
     Dosage: 4 DF (4 X 40 MG), ONCE DAILY
     Route: 065

REACTIONS (3)
  - Localised infection [Recovering/Resolving]
  - Fall [Recovering/Resolving]
  - Limb injury [Not Recovered/Not Resolved]
